FAERS Safety Report 23719650 (Version 1)
Quarter: 2024Q2

REPORT INFORMATION
  Report Type: Spontaneous
  Country: US (occurrence: US)
  Receive Date: 20240408
  Receipt Date: 20240408
  Transmission Date: 20240716
  Serious: No
  Sender: FDA-Public Use
  Company Number: US-UPSHER-SMITH LABORATORIES, LLC-2023USL00194

PATIENT
  Sex: Male

DRUGS (3)
  1. PREVALITE [Suspect]
     Active Substance: CHOLESTYRAMINE
     Dosage: UNK, MIXED WITH 6 TO 8 OUNCES OF WATER
  2. PREVALITE [Suspect]
     Active Substance: CHOLESTYRAMINE
     Dosage: UNK, MIXED WITH 6 TO 8 OUNCES OF WATER
     Dates: end: 202303
  3. PREVALITE [Suspect]
     Active Substance: CHOLESTYRAMINE
     Dosage: UNK, MIXED WITH 3 OUNCES OF WATER
     Dates: start: 20230309

REACTIONS (2)
  - Throat irritation [Not Recovered/Not Resolved]
  - Unevaluable event [Unknown]

NARRATIVE: CASE EVENT DATE: 20230309
